FAERS Safety Report 9697634 (Version 2)
Quarter: 2014Q1

REPORT INFORMATION
  Report Type: Spontaneous
  Country: US (occurrence: US)
  Receive Date: 20131120
  Receipt Date: 20140102
  Transmission Date: 20141002
  Serious: No
  Sender: FDA-Public Use
  Company Number: US-PFIZER INC-2013327706

PATIENT
  Sex: Female

DRUGS (4)
  1. CLOPIDOGREL [Suspect]
     Indication: ANTICOAGULANT THERAPY
     Dosage: 75 MG, UNK
  2. CHANTIX [Interacting]
     Dosage: 0.5 MG, 1X/DAY
     Dates: start: 20131101
  3. CHANTIX [Interacting]
     Dosage: 0.5 MG, 2X/DAY
  4. CHANTIX [Interacting]
     Dosage: 1 MG, 2X/DAY

REACTIONS (5)
  - Drug interaction [Unknown]
  - Abdominal pain upper [Unknown]
  - Nausea [Unknown]
  - Insomnia [Unknown]
  - Contusion [Unknown]
